FAERS Safety Report 15493033 (Version 1)
Quarter: 2018Q4

REPORT INFORMATION
  Report Type: Spontaneous
  Country: US (occurrence: US)
  Receive Date: 20181004
  Receipt Date: 20181004
  Transmission Date: 20190205
  Serious: Yes (Other)
  Sender: FDA-Public Use
  Company Number: None

PATIENT
  Age: 34 Year
  Sex: Female
  Weight: 80.55 kg

DRUGS (14)
  1. DOCUSATE SODIUM. [Concomitant]
     Active Substance: DOCUSATE SODIUM
  2. TRAZODONE [Concomitant]
     Active Substance: TRAZODONE HYDROCHLORIDE
  3. DISULFIRAM. [Concomitant]
     Active Substance: DISULFIRAM
  4. HYDROXYZINE PAMOATE. [Concomitant]
     Active Substance: HYDROXYZINE PAMOATE
  5. SENNA [Concomitant]
     Active Substance: SENNA LEAF\SENNOSIDES\SENNOSIDES A AND B
  6. BUPROPION XL [Concomitant]
     Active Substance: BUPROPION
  7. TETRACYCLINE [Concomitant]
     Active Substance: TETRACYCLINE
  8. CLINDAMYCIN 1% [Concomitant]
  9. INVEGA SUSTENNA [Suspect]
     Active Substance: PALIPERIDONE PALMITATE
     Indication: MENTAL DISORDER
     Dosage: ?          QUANTITY:1 DF DOSAGE FORM;OTHER FREQUENCY:1 PER 28 DAYS;?
     Route: 030
     Dates: start: 20180423
  10. VALACYCLOVIR [Concomitant]
     Active Substance: VALACYCLOVIR HYDROCHLORIDE
  11. TOPIRAMATE. [Concomitant]
     Active Substance: TOPIRAMATE
  12. GABAPENTIN. [Suspect]
     Active Substance: GABAPENTIN
  13. CEREFOLINNAC [Concomitant]
  14. OLANZAPINE. [Concomitant]
     Active Substance: OLANZAPINE

REACTIONS (6)
  - Belligerence [None]
  - Insomnia [None]
  - Gene mutation [None]
  - Social avoidant behaviour [None]
  - Drug effect decreased [None]
  - Agitation [None]

NARRATIVE: CASE EVENT DATE: 20181002
